FAERS Safety Report 5603467-6 (Version None)
Quarter: 2008Q1

REPORT INFORMATION
  Report Type: 
  Country: None (occurrence: None)
  Receive Date: 20080123
  Receipt Date: 20080117
  Transmission Date: 20080703
  Serious: Yes (Death)
  Sender: FDA-Public Use
  Company Number: 163-21880-08011091

PATIENT
  Age: 76 Year
  Sex: Male

DRUGS (1)
  1. REVLIMID [Suspect]
     Indication: MULTIPLE MYELOMA
     Dosage: 25 MG, 1 IN 1 D, ORAL
     Route: 048
     Dates: start: 20061207

REACTIONS (6)
  - FATIGUE [None]
  - HAEMOGLOBIN DECREASED [None]
  - HICCUPS [None]
  - PERIPHERAL SENSORY NEUROPATHY [None]
  - RASH [None]
  - WHITE BLOOD CELL COUNT DECREASED [None]
